FAERS Safety Report 5684065-5 (Version None)
Quarter: 2008Q1

REPORT INFORMATION
  Report Type: 
  Country: None (occurrence: None)
  Receive Date: 20080328
  Receipt Date: 20080325
  Transmission Date: 20080703
  Serious: Yes (Hospitalization, Congenital Anomaly)
  Sender: FDA-Public Use
  Company Number: FR-AVENTIS-200811087FR

PATIENT
  Age: 1 Day
  Sex: Male
  Weight: 2.97 kg

DRUGS (2)
  1. AMARYL [Suspect]
     Indication: TYPE 2 DIABETES MELLITUS
     Route: 064
     Dates: start: 20070301, end: 20070501
  2. INSULIN [Concomitant]
     Route: 064
     Dates: start: 20070501, end: 20071227

REACTIONS (12)
  - CAESAREAN SECTION [None]
  - CONGENITAL ANOMALY [None]
  - CONGENITAL AORTIC ANOMALY [None]
  - CONGENITAL HAND MALFORMATION [None]
  - CYTOGENETIC ABNORMALITY [None]
  - DRUG EXPOSURE DURING PREGNANCY [None]
  - ERYTHROLEUKAEMIA [None]
  - KARYOTYPE ANALYSIS ABNORMAL [None]
  - NEONATAL RESPIRATORY DISTRESS SYNDROME [None]
  - NEONATAL TACHYPNOEA [None]
  - PRE-ECLAMPSIA [None]
  - UMBILICAL CORD ABNORMALITY [None]
